FAERS Safety Report 6537203-6 (Version None)
Quarter: 2010Q1

REPORT INFORMATION
  Report Type: 
  Country: None (occurrence: None)
  Receive Date: 20100114
  Receipt Date: 20100103
  Transmission Date: 20100710
  Serious: Yes (Other)
  Sender: FDA-Public Use
  Company Number: US-JNJFOC-20100102359

PATIENT
  Sex: Female

DRUGS (3)
  1. TYLENOL (CAPLET) [Suspect]
  2. TYLENOL (CAPLET) [Suspect]
     Indication: ARTHRALGIA
  3. TYLENOL PM [Concomitant]
     Indication: INSOMNIA

REACTIONS (3)
  - PRODUCT QUALITY ISSUE [None]
  - RENAL CYST [None]
  - THROMBOSIS [None]
